FAERS Safety Report 19057342 (Version 2)
Quarter: 2021Q2

REPORT INFORMATION
  Report Type: Spontaneous
  Country: US (occurrence: US)
  Receive Date: 20210325
  Receipt Date: 20210426
  Transmission Date: 20210717
  Serious: No
  Sender: FDA-Public Use
  Company Number: US-BIOGEN-2021BI00993842

PATIENT
  Sex: Male

DRUGS (1)
  1. VUMERITY [Suspect]
     Active Substance: DIROXIMEL FUMARATE
     Indication: MULTIPLE SCLEROSIS
     Dosage: 462 MILLIGRAM CYCLICAL
     Route: 065
     Dates: start: 20210215, end: 202103

REACTIONS (3)
  - Rash papular [Recovered/Resolved]
  - Rash [Unknown]
  - Pruritus [Recovered/Resolved]
